FAERS Safety Report 8016521-9 (Version None)
Quarter: 2011Q4

REPORT INFORMATION
  Report Type: 
  Country: None (occurrence: None)
  Receive Date: 20111230
  Receipt Date: 20111221
  Transmission Date: 20120403
  Serious: Yes (Hospitalization)
  Sender: FDA-Public Use
  Company Number: IT-ASTRAZENECA-2011SE77480

PATIENT
  Age: 29015 Day
  Sex: Male

DRUGS (3)
  1. LOSARTAN POTASSIUM/DROCLOTIAZIDE [Concomitant]
     Indication: HYPERTENSION
     Route: 065
  2. OMEPRAZOLE [Suspect]
     Indication: ABDOMINAL PAIN UPPER
     Route: 041
     Dates: start: 20111219, end: 20111219
  3. SCOPOLAMINE [Suspect]
     Indication: ABDOMINAL PAIN UPPER
     Route: 042
     Dates: start: 20111219, end: 20111219

REACTIONS (2)
  - TONGUE OEDEMA [None]
  - DRY MOUTH [None]
